FAERS Safety Report 5454394-9 (Version None)
Quarter: 2007Q3

REPORT INFORMATION
  Report Type: 
  Country: None (occurrence: None)
  Receive Date: 20070917
  Receipt Date: 20060803
  Transmission Date: 20080115
  Serious: No
  Sender: FDA-Public Use
  Company Number: US-ASTRAZENECA-2006UW15555

PATIENT
  Age: 45 Year
  Sex: Female

DRUGS (9)
  1. SEROQUEL [Suspect]
     Indication: DEPRESSION
     Route: 048
  2. SEROQUEL [Suspect]
     Indication: NERVOUSNESS
     Route: 048
  3. SEROQUEL [Suspect]
     Indication: ANXIETY
     Route: 048
  4. XANAX [Concomitant]
  5. BUPROPINE [Concomitant]
  6. EFFEXOR [Concomitant]
  7. PRILOSEC [Concomitant]
  8. LIBRIUM [Concomitant]
  9. MORPHINE SULFATE [Concomitant]

REACTIONS (1)
  - DRUG SCREEN POSITIVE [None]
